FAERS Safety Report 13185901 (Version 1)
Quarter: 2017Q1

REPORT INFORMATION
  Report Type: Spontaneous
  Country: SI (occurrence: SI)
  Receive Date: 20170203
  Receipt Date: 20170203
  Transmission Date: 20170428
  Serious: Yes (Other)
  Sender: FDA-Public Use
  Company Number: PHHY2017SI011301

PATIENT
  Age: 75 Year
  Sex: Female

DRUGS (3)
  1. PRENESSA [Suspect]
     Active Substance: PERINDOPRIL
     Indication: HYPERTENSION
     Dosage: 4 MG,
     Route: 048
     Dates: end: 20161228
  2. FROMILID [Concomitant]
     Active Substance: CLARITHROMYCIN
     Indication: PROPHYLAXIS
     Dosage: 500 MG, BID
     Route: 048
     Dates: start: 20161008
  3. ELDERIN [Suspect]
     Active Substance: ETODOLAC
     Indication: PAIN
     Dosage: 300 MG,
     Route: 048

REACTIONS (2)
  - Hyperkalaemia [Recovered/Resolved]
  - Glomerular filtration rate decreased [None]

NARRATIVE: CASE EVENT DATE: 20161228
